FAERS Safety Report 4621021-X (Version None)
Quarter: 2005Q1

REPORT INFORMATION
  Report Type: 
  Country: None (occurrence: None)
  Receive Date: 20050325
  Receipt Date: 20050314
  Transmission Date: 20050727
  Serious: Yes (Hospitalization)
  Sender: FDA-Public Use
  Company Number: GXKR2005CA00779

PATIENT
  Age: 4 Month
  Sex: Male

DRUGS (2)
  1. DEXAMETHASONE [Suspect]
     Indication: GRANULOMA
  2. ANTI-REFLUX MEDICATIONS [Concomitant]

REACTIONS (4)
  - CARDIAC MURMUR [None]
  - TACHYCARDIA [None]
  - VENTRICULAR DYSFUNCTION [None]
  - VENTRICULAR HYPERTROPHY [None]
